FAERS Safety Report 9855664 (Version 1)
Quarter: 2014Q1

REPORT INFORMATION
  Report Type: Spontaneous
  Country: IT (occurrence: IT)
  Receive Date: 20140130
  Receipt Date: 20140130
  Transmission Date: 20141002
  Serious: Yes (Other)
  Sender: FDA-Public Use
  Company Number: IT-BAYER-2014-014108

PATIENT
  Age: 77 Year
  Sex: Male

DRUGS (3)
  1. NEXAVAR [Suspect]
     Indication: HEPATOCELLULAR CARCINOMA
     Dosage: 600 MG, QD
     Route: 048
     Dates: start: 20131008, end: 20131030
  2. FUROSEMIDE [Concomitant]
     Dosage: UNK
     Route: 048
  3. CANRENONE [Concomitant]
     Dosage: UNK
     Route: 048

REACTIONS (2)
  - Skin necrosis [Recovering/Resolving]
  - Skin lesion [Recovering/Resolving]
